FAERS Safety Report 7987253-8 (Version None)
Quarter: 2011Q4

REPORT INFORMATION
  Report Type: 
  Country: None (occurrence: None)
  Receive Date: 20111216
  Receipt Date: 20111012
  Transmission Date: 20120403
  Serious: No
  Sender: FDA-Public Use
  Company Number: US-BRISTOL-MYERS SQUIBB COMPANY-16156457

PATIENT

DRUGS (1)
  1. ABILIFY [Suspect]
     Dosage: TITRATED UP TO 15MG,PUT BACK ON 10MG

REACTIONS (2)
  - MENTAL IMPAIRMENT [None]
  - FEELING ABNORMAL [None]
